FAERS Safety Report 8539635-3 (Version None)
Quarter: 2012Q3

REPORT INFORMATION
  Report Type: 
  Country: None (occurrence: None)
  Receive Date: 20120726
  Receipt Date: 20120721
  Transmission Date: 20120928
  Serious: Yes (Other)
  Sender: FDA-Public Use
  Company Number: PHHY2012AR063367

PATIENT
  Sex: Female

DRUGS (5)
  1. BIPERIDENE [Concomitant]
     Dosage: 1 MG, DAILY
  2. LAMOTRIGINE [Concomitant]
     Dosage: 150 MG, DAILY
  3. HALOPERIDOL [Concomitant]
     Dosage: 1 ML, EVRY 3 DAYS
  4. GEMFIBROZIL [Concomitant]
     Dosage: 600 MG, DAILY
  5. CLOZAPINE [Suspect]
     Indication: SCHIZOPHRENIA
     Dosage: 125MG DAILY

REACTIONS (2)
  - HYPOGAMMAGLOBULINAEMIA [None]
  - BLOOD CHOLESTEROL INCREASED [None]
